FAERS Safety Report 23811676 (Version 1)
Quarter: 2024Q2

REPORT INFORMATION
  Report Type: Spontaneous
  Country: US (occurrence: US)
  Receive Date: 20240503
  Receipt Date: 20240503
  Transmission Date: 20240715
  Serious: Yes (Hospitalization, Other)
  Sender: FDA-Public Use
  Company Number: US-LUPIN PHARMACEUTICALS INC.-2024-03539

PATIENT
  Age: 13 Year
  Sex: Female

DRUGS (2)
  1. SERTRALINE HYDROCHLORIDE [Suspect]
     Active Substance: SERTRALINE HYDROCHLORIDE
     Indication: Product used for unknown indication
     Dosage: UNK INGESTING 45 TO 50 25 MG TABLETS
     Route: 048
  2. LORAZEPAM [Suspect]
     Active Substance: LORAZEPAM
     Indication: Serotonin syndrome
     Dosage: UNK
     Route: 065

REACTIONS (4)
  - Suicide attempt [Recovered/Resolved]
  - Intentional overdose [Unknown]
  - Serotonin syndrome [Recovered/Resolved]
  - Off label use [Unknown]
